FAERS Safety Report 5352110-2 (Version None)
Quarter: 2007Q2

REPORT INFORMATION
  Report Type: 
  Country: None (occurrence: None)
  Receive Date: 20070607
  Receipt Date: 20070529
  Transmission Date: 20071010
  Serious: Yes (Other)
  Sender: FDA-Public Use
  Company Number: 2007322460

PATIENT
  Age: 4 Year
  Sex: Male
  Weight: 13.6 kg

DRUGS (3)
  1. BENADRYL [Suspect]
     Indication: HYPERSENSITIVITY
     Dosage: 1/2 TEASPOON AS NEEDED, ORAL
     Route: 048
     Dates: start: 20050101
  2. XOPENEX [Concomitant]
  3. PULMICORT [Concomitant]

REACTIONS (1)
  - COELIAC DISEASE [None]
